FAERS Safety Report 7447165-5 (Version None)
Quarter: 2011Q2

REPORT INFORMATION
  Report Type: 
  Country: None (occurrence: None)
  Receive Date: 20110429
  Receipt Date: 20101213
  Transmission Date: 20111010
  Serious: No
  Sender: FDA-Public Use
  Company Number: US-ASTRAZENECA-2010SE58936

PATIENT
  Age: 87 Year
  Sex: Female

DRUGS (13)
  1. NEXIUM [Suspect]
     Indication: GASTROOESOPHAGEAL REFLUX DISEASE
     Route: 048
     Dates: start: 20090101
  2. VERAPAMIL [Concomitant]
  3. PREVASTATIN [Concomitant]
  4. BONIVA [Concomitant]
  5. ALLERGY MEDICATION [Concomitant]
  6. NAPROXEN (ALEVE) [Concomitant]
  7. GLYBERIDE [Concomitant]
  8. CELEBREX [Concomitant]
  9. PROPYLTHIOURACIL [Concomitant]
  10. METAMUSIL [Concomitant]
  11. METFORMIN [Concomitant]
  12. DIGOXIN [Concomitant]
  13. TRIAMTEREN [Concomitant]

REACTIONS (2)
  - DISEASE RECURRENCE [None]
  - THROAT IRRITATION [None]
